FAERS Safety Report 8492965-6 (Version None)
Quarter: 2012Q3

REPORT INFORMATION
  Report Type: 
  Country: None (occurrence: None)
  Receive Date: 20120706
  Receipt Date: 20120703
  Transmission Date: 20120928
  Serious: Yes (Other)
  Sender: FDA-Public Use
  Company Number: FR-GLAXOSMITHKLINE-B0812752A

PATIENT
  Sex: Female

DRUGS (3)
  1. GEMZAR [Suspect]
     Indication: LEIOMYOSARCOMA
     Dosage: 3000MG CUMULATIVE DOSE
     Route: 042
     Dates: start: 20120529
  2. LEVOTHYROXINE SODIUM [Concomitant]
     Indication: HYPOTHYROIDISM
  3. PAZOPANIB [Suspect]
     Indication: LEIOMYOSARCOMA
     Dosage: 18400MG CUMULATIVE DOSE
     Route: 048
     Dates: start: 20120529, end: 20120620

REACTIONS (1)
  - THROMBOCYTOSIS [None]
